FAERS Safety Report 5787844-9 (Version None)
Quarter: 2008Q2

REPORT INFORMATION
  Report Type: 
  Country: None (occurrence: None)
  Receive Date: 20080624
  Receipt Date: 20080624
  Transmission Date: 20081010
  Serious: Yes (Other)
  Sender: FDA-Public Use
  Company Number: None

PATIENT
  Sex: Female
  Weight: 78.0187 kg

DRUGS (2)
  1. CYMBALTA [Suspect]
     Indication: DEPRESSION
     Dosage: 1 TO 2 CAPSULES ONCE DAILY PO
     Route: 048
     Dates: start: 20080220, end: 20080310
  2. CYMBALTA [Suspect]
     Indication: NEURALGIA
     Dosage: 1 TO 2 CAPSULES ONCE DAILY PO
     Route: 048
     Dates: start: 20080220, end: 20080310

REACTIONS (9)
  - ALANINE AMINOTRANSFERASE INCREASED [None]
  - ASPARTATE AMINOTRANSFERASE INCREASED [None]
  - BLOOD ALKALINE PHOSPHATASE INCREASED [None]
  - DRUG EFFECT DECREASED [None]
  - EYE SWELLING [None]
  - FACE OEDEMA [None]
  - HEADACHE [None]
  - HYPERSENSITIVITY [None]
  - MALAISE [None]
